FAERS Safety Report 4823760-4 (Version None)
Quarter: 2005Q4

REPORT INFORMATION
  Report Type: 
  Country: None (occurrence: None)
  Receive Date: 20051107
  Receipt Date: 20041201
  Transmission Date: 20060501
  Serious: Yes (Hospitalization)
  Sender: FDA-Public Use
  Company Number: 2004BI000789

PATIENT
  Age: 60 Year
  Sex: Female
  Weight: 61.6892 kg

DRUGS (1)
  1. AVONEX [Suspect]
     Indication: MULTIPLE SCLEROSIS
     Dosage: 30 UG; QW; IM
     Route: 030
     Dates: start: 20030130, end: 20040901

REACTIONS (5)
  - ARTERIAL BYPASS OPERATION [None]
  - DIABETES MELLITUS [None]
  - IMMUNOSUPPRESSION [None]
  - IMPAIRED HEALING [None]
  - POST PROCEDURAL COMPLICATION [None]
